FAERS Safety Report 16936361 (Version 1)
Quarter: 2019Q4

REPORT INFORMATION
  Report Type: Spontaneous
  Country: GB (occurrence: GB)
  Receive Date: 20191018
  Receipt Date: 20191018
  Transmission Date: 20200122
  Serious: Yes (Disabling)
  Sender: FDA-Public Use
  Company Number: GB-MYLANLABS-2019M1097843

PATIENT
  Age: 63 Year
  Sex: Female
  Weight: 59.41 kg

DRUGS (1)
  1. EFUDIX [Suspect]
     Active Substance: FLUOROURACIL
     Indication: ACTINIC KERATOSIS
     Dosage: 1 DOSAGE FORM, QD (FOR 3 WEEKS)
     Route: 061
     Dates: start: 20190816, end: 20190822

REACTIONS (6)
  - Nausea [Recovered/Resolved with Sequelae]
  - Oropharyngeal pain [Recovered/Resolved with Sequelae]
  - Migraine [Recovered/Resolved with Sequelae]
  - Vision blurred [Recovered/Resolved with Sequelae]
  - Depersonalisation/derealisation disorder [Recovered/Resolved with Sequelae]
  - Neck pain [Recovered/Resolved with Sequelae]

NARRATIVE: CASE EVENT DATE: 20190821
